FAERS Safety Report 8926830 (Version 1)
Quarter: 2012Q4

REPORT INFORMATION
  Report Type: 
  Country: GB (occurrence: GB)
  Receive Date: 20121127
  Receipt Date: 20121127
  Transmission Date: 20130627
  Serious: Yes (Other)
  Sender: FDA-Public Use
  Company Number: GB-TEVA-371692ISR

PATIENT
  Age: 52 Year
  Sex: Female

DRUGS (6)
  1. QVAR [Suspect]
     Indication: ASTHMA
     Dosage: 50 mcg inhaler, two puffs twice daily
     Route: 055
     Dates: start: 20120814, end: 20120814
  2. ESTRADIOL [Concomitant]
     Dosage: Ongoing
     Route: 067
     Dates: start: 20110901
  3. SALBUTAMOL [Concomitant]
     Indication: ASTHMA
     Dosage: Two puffs as needed. Ongoing. 100mcg CFC free inhaler.
     Route: 055
     Dates: start: 20120814
  4. ACICLOVIR [Concomitant]
     Dosage: 5%. One five times a day. Short term
     Route: 061
     Dates: start: 20120809
  5. NEOMYCIN [Concomitant]
     Dosage: Short term.
     Route: 061
     Dates: start: 20120809
  6. CHLORHEXIDINE [Concomitant]
     Dosage: Short term use.
     Route: 061

REACTIONS (2)
  - Chest discomfort [Recovered/Resolved]
  - Palpitations [Recovered/Resolved]
